FAERS Safety Report 8775281 (Version 2)
Quarter: 2013Q3

REPORT INFORMATION
  Report Type: Report from Study
  Country: GB (occurrence: GB)
  Receive Date: 20120909
  Receipt Date: 20130722
  Transmission Date: 20140515
  Serious: Yes (Hospitalization)
  Sender: FDA-Public Use
  Company Number: GB-009507513-1206USA02182

PATIENT
  Age: 25 Year
  Sex: Female

DRUGS (8)
  1. RALTEGRAVIR POTASSIUM [Suspect]
     Dosage: 800 MG, QD
     Route: 048
     Dates: start: 20100713, end: 20111108
  2. TRUVADA [Suspect]
     Dosage: 1 DF, QD
     Route: 048
     Dates: start: 20100713, end: 20111108
  3. SELZENTRY [Suspect]
     Dosage: 300 MG, QD
     Route: 048
     Dates: start: 20100713, end: 20111108
  4. NORVIR [Suspect]
     Dosage: 100 MG, QD
     Route: 048
     Dates: start: 20100713, end: 20111108
  5. PREZISTA [Suspect]
     Dosage: 800 MG, QD
     Route: 048
     Dates: start: 20100713, end: 20111108
  6. EPZICOM [Suspect]
     Dosage: 1 DF, QD
     Route: 048
     Dates: start: 20120305, end: 20120319
  7. KALETRA [Suspect]
     Dosage: 2 DF, QD
     Route: 048
     Dates: start: 20120305, end: 20120319
  8. COMBIVIR [Suspect]
     Dosage: 2 DF, QD
     Route: 048
     Dates: start: 20120319

REACTIONS (2)
  - Hepatocellular injury [Unknown]
  - Exposure during pregnancy [Recovered/Resolved]
